FAERS Safety Report 10174210 (Version 3)
Quarter: 2014Q2

REPORT INFORMATION
  Report Type: Spontaneous
  Country: IT (occurrence: IT)
  Receive Date: 20140515
  Receipt Date: 20140613
  Transmission Date: 20141212
  Serious: Yes (Other)
  Sender: FDA-Public Use
  Company Number: IT-JNJFOC-20140506236

PATIENT
  Age: 59 Year
  Sex: Female

DRUGS (6)
  1. REMICADE [Suspect]
     Indication: COLITIS ULCERATIVE
     Route: 042
  2. REMICADE [Suspect]
     Indication: COLITIS ULCERATIVE
     Dosage: 100MG CYCLIC
     Route: 042
     Dates: start: 20140429, end: 20140429
  3. REMICADE [Suspect]
     Indication: ARTHROPATHY
     Route: 042
  4. REMICADE [Suspect]
     Indication: ARTHROPATHY
     Dosage: 100MG CYCLIC
     Route: 042
     Dates: start: 20140429, end: 20140429
  5. TRIMETON [Concomitant]
  6. URBASON [Concomitant]
     Route: 042

REACTIONS (5)
  - Infusion related reaction [Unknown]
  - Urticaria [Unknown]
  - Respiratory disorder [Unknown]
  - Laryngeal oedema [Unknown]
  - Hot flush [Recovered/Resolved]
